FAERS Safety Report 5155908-9 (Version None)
Quarter: 2006Q4

REPORT INFORMATION
  Report Type: 
  Country: None (occurrence: None)
  Receive Date: 20061114
  Receipt Date: 20061101
  Transmission Date: 20070319
  Serious: Yes (Death)
  Sender: FDA-Public Use
  Company Number: HQWYE304503NOV06

PATIENT
  Age: 33 Year

DRUGS (2)
  1. ADVIL [Suspect]
     Dosage: ORAL
     Route: 048
  2. ACETAMINOPHEN AND HYDROCODONE BITARTRATE [Suspect]
     Dosage: ORAL

REACTIONS (1)
  - INTENTIONAL DRUG MISUSE [None]
